FAERS Safety Report 20266894 (Version 1)
Quarter: 2021Q4

REPORT INFORMATION
  Report Type: Report from Study
  Country: CA (occurrence: CA)
  Receive Date: 20211231
  Receipt Date: 20211231
  Transmission Date: 20220303
  Serious: Yes (Other)
  Sender: FDA-Public Use
  Company Number: CA-BAUSCH-BL-2021-042625

PATIENT
  Age: 74 Year
  Sex: Male

DRUGS (5)
  1. GLUMETZA [Suspect]
     Active Substance: METFORMIN HYDROCHLORIDE
     Indication: Diabetes mellitus
     Route: 048
  2. SANDOSTATIN [Suspect]
     Active Substance: OCTREOTIDE ACETATE
     Indication: Pancreatic neuroendocrine tumour
     Route: 030
  3. SANDOSTATIN [Suspect]
     Active Substance: OCTREOTIDE ACETATE
     Route: 030
  4. SANDOSTATIN [Suspect]
     Active Substance: OCTREOTIDE ACETATE
     Route: 030
  5. LORAZEPAM [Concomitant]
     Active Substance: LORAZEPAM
     Indication: Product used for unknown indication

REACTIONS (11)
  - Diabetes mellitus [Recovered/Resolved]
  - Blood pressure increased [Recovered/Resolved]
  - Bradycardia [Recovered/Resolved]
  - Ear infection [Recovered/Resolved]
  - Influenza [Recovered/Resolved]
  - Injection site haemorrhage [Recovered/Resolved]
  - Mass [Recovered/Resolved]
  - Ear pain [Recovered/Resolved]
  - Fatigue [Recovered/Resolved]
  - Asthenia [Recovered/Resolved]
  - Needle issue [Recovered/Resolved]
